FAERS Safety Report 4568738-3 (Version None)
Quarter: 2005Q1

REPORT INFORMATION
  Report Type: 
  Country: None (occurrence: None)
  Receive Date: 20050202
  Receipt Date: 20041209
  Transmission Date: 20050727
  Serious: Yes (Life-Threatening, Hospitalization, Disabling)
  Sender: FDA-Public Use
  Company Number: DE-MERCK-0412DEU00119

PATIENT
  Age: 56 Year
  Sex: Male
  Weight: 99 kg

DRUGS (7)
  1. VIOXX [Suspect]
     Indication: CAUDA EQUINA SYNDROME
     Route: 048
     Dates: start: 20000324, end: 20041001
  2. VIOXX [Suspect]
     Indication: POLYARTHRITIS
     Route: 048
     Dates: start: 20000324, end: 20041001
  3. ATENOLOL [Concomitant]
     Indication: CORONARY ARTERY DISEASE
     Route: 065
     Dates: start: 19990721
  4. ATENOLOL [Concomitant]
     Indication: HYPERTENSION
     Route: 065
     Dates: start: 19990721
  5. ZOCOR [Concomitant]
     Indication: HYPERCHOLESTEROLAEMIA
     Route: 048
     Dates: start: 19990111
  6. METFORMIN [Concomitant]
     Indication: DIABETES MELLITUS NON-INSULIN-DEPENDENT
     Route: 065
     Dates: start: 19990112
  7. ISOSORBIDE DINITRATE [Concomitant]
     Indication: ANGINA PECTORIS
     Route: 065
     Dates: start: 19990325

REACTIONS (6)
  - ANGINA PECTORIS [None]
  - ANGINA UNSTABLE [None]
  - EROSIVE DUODENITIS [None]
  - GASTRIC ULCER [None]
  - MYOCARDIAL INFARCTION [None]
  - UPPER GASTROINTESTINAL HAEMORRHAGE [None]
